FAERS Safety Report 7720439-6 (Version None)
Quarter: 2011Q3

REPORT INFORMATION
  Report Type: 
  Country: None (occurrence: None)
  Receive Date: 20110831
  Receipt Date: 20110822
  Transmission Date: 20111222
  Serious: Yes (Hospitalization, Other)
  Sender: FDA-Public Use
  Company Number: US-US-EMD SERONO, INC.-233499J08USA

PATIENT
  Sex: Female

DRUGS (8)
  1. NEURONTIN [Concomitant]
     Indication: MULTIPLE SCLEROSIS
     Route: 065
  2. WELCHOL [Concomitant]
     Indication: BLOOD CHOLESTEROL INCREASED
     Route: 065
     Dates: start: 20030101
  3. FISH OIL [Concomitant]
     Indication: BLOOD CHOLESTEROL INCREASED
     Route: 065
  4. REBIF [Suspect]
     Indication: MULTIPLE SCLEROSIS
     Route: 058
     Dates: start: 20071102
  5. ZETIA [Concomitant]
     Indication: BLOOD CHOLESTEROL INCREASED
     Route: 065
     Dates: start: 20030101
  6. METOPROLOL TARTRATE [Concomitant]
     Indication: HYPERTENSION
     Route: 048
     Dates: start: 19900101
  7. CYMBALTA [Concomitant]
     Indication: DEPRESSION
     Route: 065
     Dates: start: 20070301
  8. PRILOSEC [Concomitant]
     Indication: GASTROOESOPHAGEAL REFLUX DISEASE
     Route: 065
     Dates: start: 19850101

REACTIONS (19)
  - HEART RATE INCREASED [None]
  - GASTROOESOPHAGEAL REFLUX DISEASE [None]
  - FALL [None]
  - NERVE COMPRESSION [None]
  - PERIPHERAL COLDNESS [None]
  - CHEST DISCOMFORT [None]
  - LIMB CRUSHING INJURY [None]
  - RIB FRACTURE [None]
  - FLUSHING [None]
  - CHEST PAIN [None]
  - HYPOAESTHESIA [None]
  - HEADACHE [None]
  - PAIN IN JAW [None]
  - FATIGUE [None]
  - CARDIAC ENZYMES INCREASED [None]
  - HYPERTENSION [None]
  - CENTRAL NERVOUS SYSTEM LESION [None]
  - BALANCE DISORDER [None]
  - PULMONARY EMBOLISM [None]
